FAERS Safety Report 5964261-X (Version None)
Quarter: 2008Q4

REPORT INFORMATION
  Report Type: 
  Country: None (occurrence: None)
  Receive Date: 20081124
  Receipt Date: 20081112
  Transmission Date: 20090506
  Serious: Yes (Other)
  Sender: FDA-Public Use
  Company Number: BR-PFIZER INC-2008096829

PATIENT
  Sex: Female
  Weight: 66 kg

DRUGS (1)
  1. CHAMPIX [Suspect]
     Indication: EX-TOBACCO USER
     Route: 048
     Dates: start: 20081001

REACTIONS (4)
  - BLOOD PRESSURE INCREASED [None]
  - CRYING [None]
  - HEADACHE [None]
  - SOCIAL AVOIDANT BEHAVIOUR [None]
